FAERS Safety Report 7999405-1 (Version None)
Quarter: 2011Q4

REPORT INFORMATION
  Report Type: 
  Country: None (occurrence: None)
  Receive Date: 20111221
  Receipt Date: 20111209
  Transmission Date: 20120403
  Serious: Yes (Hospitalization)
  Sender: FDA-Public Use
  Company Number: CA-ELI_LILLY_AND_COMPANY-CA201112003063

PATIENT
  Sex: Female

DRUGS (5)
  1. HUMULIN N [Suspect]
     Dosage: UNK
     Dates: end: 20111001
  2. ORAL ANTIDIABETICS [Concomitant]
  3. HUMALOG [Suspect]
     Dosage: UNK
  4. HUMULIN 70/30 [Suspect]
     Dosage: UNK
     Dates: start: 20111001, end: 20111202
  5. LANTUS [Concomitant]
     Dosage: UNK
     Dates: start: 20111202

REACTIONS (4)
  - LUNG INFECTION [None]
  - MEMORY IMPAIRMENT [None]
  - HYPOGLYCAEMIA [None]
  - HYPERGLYCAEMIA [None]
